FAERS Safety Report 14171007 (Version 2)
Quarter: 2017Q4

REPORT INFORMATION
  Report Type: Spontaneous
  Country: US (occurrence: US)
  Receive Date: 20171108
  Receipt Date: 20171211
  Transmission Date: 20180321
  Serious: No
  Sender: FDA-Public Use
  Company Number: PHEH2017US035312

PATIENT
  Sex: Female

DRUGS (1)
  1. HYDROCORTISONE. [Suspect]
     Active Substance: HYDROCORTISONE
     Indication: RASH PRURITIC
     Route: 065

REACTIONS (1)
  - Drug ineffective [Recovering/Resolving]
